FAERS Safety Report 17281167 (Version 1)
Quarter: 2020Q1

REPORT INFORMATION
  Report Type: Spontaneous
  Country: US (occurrence: US)
  Receive Date: 20200117
  Receipt Date: 20200117
  Transmission Date: 20200409
  Serious: Yes (Hospitalization)
  Sender: FDA-Public Use
  Company Number: US-PACIRA-202000005

PATIENT
  Age: 81 Year
  Sex: Female

DRUGS (5)
  1. DEXMEDETOMIDINE. [Concomitant]
     Active Substance: DEXMEDETOMIDINE
     Indication: SEDATION
     Route: 065
  2. EXPAREL [Suspect]
     Active Substance: BUPIVACAINE
     Indication: TRANSVERSUS ABDOMINIS PLANE BLOCK
     Dosage: UNKNOWN
  3. PRESERVATIVE-FREE MORPHINE [Suspect]
     Active Substance: MORPHINE
     Indication: POSTOPERATIVE ANALGESIA
     Dosage: UNKNOWN
     Route: 037
  4. FENTANYL. [Suspect]
     Active Substance: FENTANYL
     Indication: POSTOPERATIVE ANALGESIA
     Dosage: UNKNOWN
     Route: 037
  5. NOREPINEPHRINE. [Concomitant]
     Active Substance: NOREPINEPHRINE
     Indication: SEDATION
     Dosage: TITRATION
     Route: 065

REACTIONS (8)
  - Hypokinesia [Unknown]
  - Ventricular tachycardia [Unknown]
  - Inappropriate schedule of product administration [Unknown]
  - Product use in unapproved indication [Unknown]
  - Oliguria [Unknown]
  - Metabolic acidosis [Unknown]
  - Peripheral ischaemia [Unknown]
  - Renal failure [Unknown]
